FAERS Safety Report 24766591 (Version 1)
Quarter: 2024Q4

REPORT INFORMATION
  Report Type: Spontaneous
  Country: JP (occurrence: JP)
  Receive Date: 20241223
  Receipt Date: 20241223
  Transmission Date: 20250115
  Serious: Yes (Other)
  Sender: ALEXION PHARMACEUTICALS
  Company Number: JP-ASTRAZENECA-240126028_012620_P_1

PATIENT
  Age: 5 Decade

DRUGS (4)
  1. TRUQAP [Suspect]
     Active Substance: CAPIVASERTIB
     Indication: Breast cancer
     Dosage: DOSE UNKNOWN, ON A 4-DAY-ON, 3-DAY-OFF SCHEDULE
  2. TRUQAP [Suspect]
     Active Substance: CAPIVASERTIB
     Dosage: DOSE UNKNOWN, ON A 4-DAY-ON, 3-DAY-OFF SCHEDULE
  3. FULVESTRANT [Suspect]
     Active Substance: FULVESTRANT
     Indication: Breast cancer
     Dosage: DOSE UNKNOWN
  4. FULVESTRANT [Suspect]
     Active Substance: FULVESTRANT

REACTIONS (3)
  - Malignant neoplasm progression [Unknown]
  - Rash [Unknown]
  - Eosinophil count increased [Unknown]
